FAERS Safety Report 7255537-7 (Version None)
Quarter: 2011Q1

REPORT INFORMATION
  Report Type: 
  Country: None (occurrence: None)
  Receive Date: 20110129
  Receipt Date: 20100306
  Transmission Date: 20110831
  Serious: No
  Sender: FDA-Public Use
  Company Number: US-ABBOTT-10P-163-0630930-00

PATIENT
  Sex: Male
  Weight: 59.928 kg

DRUGS (1)
  1. HUMIRA [Suspect]
     Indication: CROHN'S DISEASE
     Dosage: DAY 15
     Dates: start: 20100209

REACTIONS (6)
  - NASAL CONGESTION [None]
  - UPPER RESPIRATORY TRACT INFECTION [None]
  - OROPHARYNGEAL PAIN [None]
  - THROAT IRRITATION [None]
  - PRODUCTIVE COUGH [None]
  - SPUTUM DISCOLOURED [None]
